FAERS Safety Report 9431882 (Version 1)
Quarter: 2013Q3

REPORT INFORMATION
  Report Type: Spontaneous
  Country: CA (occurrence: CA)
  Receive Date: 20130731
  Receipt Date: 20130731
  Transmission Date: 20140515
  Serious: Yes (Other)
  Sender: FDA-Public Use
  Company Number: PHHY2013CA080588

PATIENT
  Sex: Female

DRUGS (1)
  1. ESTRADOT [Suspect]
     Dosage: UNK UKN, UNK
     Route: 062

REACTIONS (3)
  - Cystitis interstitial [Unknown]
  - Bladder pain [Unknown]
  - Burning sensation [Unknown]
